FAERS Safety Report 4758592-9 (Version None)
Quarter: 2005Q3

REPORT INFORMATION
  Report Type: 
  Country: None (occurrence: None)
  Receive Date: 20050901
  Receipt Date: 20050823
  Transmission Date: 20060218
  Serious: Yes (Hospitalization)
  Sender: FDA-Public Use
  Company Number: US-JNJFOC-20050506155

PATIENT
  Sex: Male
  Weight: 81.65 kg

DRUGS (5)
  1. RISPERDAL [Suspect]
     Dates: start: 20050301
  2. PAXIL CR [Suspect]
     Dosage: (AT NIGHT)
     Dates: start: 20050301
  3. LORAZEPAM [Concomitant]
     Dosage: (IN 3 DIVIDED DOSES)
  4. ULTRAM [Concomitant]
  5. HYDROCODONE #5 [Concomitant]

REACTIONS (7)
  - CARPAL TUNNEL SYNDROME [None]
  - DYSTONIA [None]
  - FALL [None]
  - MUSCLE NECROSIS [None]
  - MUSCLE SPASMS [None]
  - NECK INJURY [None]
  - NERVE INJURY [None]
